FAERS Safety Report 4753778-1 (Version None)
Quarter: 2005Q3

REPORT INFORMATION
  Report Type: 
  Country: None (occurrence: None)
  Receive Date: 20050825
  Receipt Date: 20050818
  Transmission Date: 20060218
  Serious: Yes (Death)
  Sender: FDA-Public Use
  Company Number: 2005S1007590

PATIENT
  Age: 62 Year
  Sex: Female

DRUGS (7)
  1. FENTANYL [Suspect]
     Indication: FIBROMYALGIA
     Dosage: 50 MCG/HR;Q3D;TDER
     Dates: start: 20050519, end: 20050828
  2. ALBUTEROL SULFATE HFA [Concomitant]
  3. AMITRIPTYLINE HCL [Concomitant]
  4. HYDROCHLORIDE [Concomitant]
  5. CELECOXIB [Concomitant]
  6. DIAZEPAM [Concomitant]
  7. CYCLOBENZAPRINE HCL [Concomitant]

REACTIONS (1)
  - MYOCARDIAL INFARCTION [None]
